FAERS Safety Report 8231040-2 (Version None)
Quarter: 2012Q1

REPORT INFORMATION
  Report Type: 
  Country: None (occurrence: None)
  Receive Date: 20120323
  Receipt Date: 20120315
  Transmission Date: 20120608
  Serious: Yes (Other)
  Sender: FDA-Public Use
  Company Number: GB-SANOFI-AVENTIS-2012SA018410

PATIENT
  Age: 67 Year
  Sex: Male

DRUGS (5)
  1. FLUOROURACIL [Suspect]
     Route: 040
     Dates: start: 20100604
  2. FLUOROURACIL [Suspect]
     Route: 065
     Dates: start: 20100604
  3. CETUXIMAB [Suspect]
     Route: 065
     Dates: start: 20100604
  4. CAPECITABINE [Suspect]
     Route: 065
  5. OXALIPLATIN [Suspect]
     Route: 065
     Dates: start: 20100604

REACTIONS (1)
  - BLOOD MAGNESIUM DECREASED [None]
